FAERS Safety Report 12674138 (Version 3)
Quarter: 2016Q3

REPORT INFORMATION
  Report Type: Spontaneous
  Country: US (occurrence: US)
  Receive Date: 20160822
  Receipt Date: 20160830
  Transmission Date: 20161109
  Serious: Yes (Other)
  Sender: FDA-Public Use
  Company Number: PHEH2016US020965

PATIENT
  Age: 89 Year
  Sex: Male

DRUGS (1)
  1. TEKTURNA HCT [Suspect]
     Active Substance: ALISKIREN HEMIFUMARATE\HYDROCHLOROTHIAZIDE
     Indication: PRODUCT USED FOR UNKNOWN INDICATION
     Dosage: UNK
     Route: 048
     Dates: start: 20160817

REACTIONS (2)
  - Vision blurred [Unknown]
  - Macular degeneration [Unknown]

NARRATIVE: CASE EVENT DATE: 20160817
